FAERS Safety Report 10060963 (Version 2)
Quarter: 2014Q2

REPORT INFORMATION
  Report Type: Spontaneous
  Country: US (occurrence: US)
  Receive Date: 20140405
  Receipt Date: 20140405
  Transmission Date: 20141212
  Serious: Yes (Death)
  Sender: FDA-Public Use
  Company Number: US-GE HEALTHCARE MEDICAL DIAGNOSTICS-OSCN-PR-0810S-0558

PATIENT
  Age: 34 Year
  Sex: Male

DRUGS (1)
  1. MAGNEVIST [Suspect]

REACTIONS (1)
  - Nephrogenic systemic fibrosis [Fatal]
